FAERS Safety Report 20350919 (Version 1)
Quarter: 2022Q1

REPORT INFORMATION
  Report Type: Spontaneous
  Country: US (occurrence: US)
  Receive Date: 20220119
  Receipt Date: 20220119
  Transmission Date: 20220423
  Serious: Yes (Other)
  Sender: FDA-Public Use
  Company Number: US-GLAXOSMITHKLINE-US2022GSK009831

PATIENT
  Sex: Female

DRUGS (2)
  1. RANITIDINE [Suspect]
     Active Substance: RANITIDINE
     Indication: Ulcer haemorrhage
     Dosage: 150 MG, QD
     Route: 065
     Dates: start: 198601, end: 201301
  2. RANITIDINE [Suspect]
     Active Substance: RANITIDINE
     Indication: Ulcer haemorrhage
     Dosage: 150 MG, QD
     Route: 065
     Dates: start: 198601, end: 201301

REACTIONS (1)
  - Colorectal cancer [Unknown]
